FAERS Safety Report 8520517-8 (Version None)
Quarter: 2012Q3

REPORT INFORMATION
  Report Type: 
  Country: None (occurrence: None)
  Receive Date: 20120719
  Receipt Date: 20120718
  Transmission Date: 20120928
  Serious: Yes (Hospitalization, Disabling)
  Sender: FDA-Public Use
  Company Number: HU-BAYER-2012-028869

PATIENT
  Age: 55 Year
  Sex: Male
  Weight: 80 kg

DRUGS (10)
  1. ENOXAPARIN SODIUM [Concomitant]
     Dosage: 0.6 ML, QD
     Route: 051
     Dates: start: 20101230
  2. TEGRETOL [Concomitant]
     Dosage: 200 MG, QD
     Route: 048
     Dates: start: 20101223
  3. ANDAXIN [Concomitant]
     Dosage: UNK
     Dates: start: 20101229
  4. AUGMENTIN '500' [Concomitant]
     Indication: PNEUMONIA
     Dosage: UNK
     Dates: start: 20101227, end: 20110103
  5. CONCOR [Concomitant]
     Dosage: 5 MG, QD
     Route: 048
     Dates: start: 20101229
  6. LEKOKLAR [Concomitant]
     Indication: PNEUMONIA
     Dosage: UNK
     Dates: start: 20101228, end: 20110103
  7. MOXIFLOXACIN [Suspect]
     Indication: PNEUMONIA
     Dosage: 400 MG, QD
     Route: 048
     Dates: start: 20110103, end: 20110112
  8. MOXIFLOXACIN [Suspect]
     Indication: PNEUMONIA
     Dosage: 400 MG, QD
     Route: 042
     Dates: start: 20110103, end: 20110103
  9. DIAPREL MR [Concomitant]
     Dosage: 60 MG, QD
     Route: 048
  10. METFORMIN HCL [Concomitant]
     Dosage: 3000 MG, QD
     Route: 048

REACTIONS (2)
  - ABSCESS [None]
  - PNEUMONIA [None]
